FAERS Safety Report 18725882 (Version 2)
Quarter: 2021Q1

REPORT INFORMATION
  Report Type: Report from Study
  Country: CA (occurrence: CA)
  Receive Date: 20210111
  Receipt Date: 20210122
  Transmission Date: 20210419
  Serious: Yes (Hospitalization)
  Sender: FDA-Public Use
  Company Number: CA-GLAXOSMITHKLINE-CA2020AMR199589

PATIENT
  Sex: Female

DRUGS (2)
  1. MEPOLIZUMAB [Suspect]
     Active Substance: MEPOLIZUMAB
     Indication: ASTHMA
     Dosage: 100 MG, Z (MONTHLY)
     Route: 042
     Dates: start: 20200730
  2. VENTOLIN [Suspect]
     Active Substance: ALBUTEROL SULFATE
     Indication: ASTHMA
     Dosage: UNK

REACTIONS (7)
  - Therapeutic product effect incomplete [Unknown]
  - Dyspnoea exertional [Recovering/Resolving]
  - Dyspnoea [Unknown]
  - Anaemia [Unknown]
  - Breath sounds [Unknown]
  - Iron deficiency [Unknown]
  - Loss of personal independence in daily activities [Recovering/Resolving]
